FAERS Safety Report 19813814 (Version 1)
Quarter: 2021Q3

REPORT INFORMATION
  Report Type: Spontaneous
  Country: US (occurrence: US)
  Receive Date: 20210907
  Receipt Date: 20210907
  Transmission Date: 20211014
  Serious: No
  Sender: FDA-Public Use
  Company Number: None

PATIENT
  Sex: Female

DRUGS (1)
  1. SAPROPTERIN DIHY PWD PACKETS 100MG PAR [Suspect]
     Active Substance: SAPROPTERIN DIHYDROCHLORIDE
     Indication: PHENYLKETONURIA
     Route: 048
     Dates: start: 20210410, end: 202107

REACTIONS (3)
  - Vomiting [None]
  - Product substitution issue [None]
  - Drug intolerance [None]
